FAERS Safety Report 9275034 (Version 1)
Quarter: 2013Q2

REPORT INFORMATION
  Report Type: Report from Study
  Country: CL (occurrence: CL)
  Receive Date: 20130507
  Receipt Date: 20130507
  Transmission Date: 20140414
  Serious: Yes (Hospitalization, Other)
  Sender: FDA-Public Use
  Company Number: PHHY2013CL039116

PATIENT
  Age: 14 Year
  Sex: Female
  Weight: 50 kg

DRUGS (5)
  1. GLIVEC [Suspect]
     Indication: ACUTE LYMPHOCYTIC LEUKAEMIA
     Dosage: 400 MG, DAILY (250 MG/M2 DAY)
     Route: 048
     Dates: start: 20130206
  2. GLIVEC [Suspect]
     Dosage: 500 MG DAILY (312.5 MG/M2)
     Route: 048
     Dates: start: 20130213
  3. GLIVEC [Suspect]
     Dosage: UNK
     Route: 048
     Dates: start: 20130318
  4. GLIVEC [Suspect]
     Dosage: UNK
     Route: 048
     Dates: start: 20130423
  5. VINCRISTINE [Suspect]

REACTIONS (11)
  - Polyneuropathy [Unknown]
  - Polyserositis [Unknown]
  - Bronchopulmonary aspergillosis [Unknown]
  - Lung disorder [Unknown]
  - Pancreatitis acute [Recovered/Resolved]
  - Hyperbilirubinaemia [Unknown]
  - Hepatitis acute [Recovered/Resolved]
  - Transaminases increased [Unknown]
  - Pericardial effusion [Recovered/Resolved]
  - Pleural effusion [Recovered/Resolved]
  - Aplastic anaemia [Unknown]
